FAERS Safety Report 9408457 (Version 3)
Quarter: 2014Q1

REPORT INFORMATION
  Report Type: Spontaneous
  Country: US (occurrence: US)
  Receive Date: 20130718
  Receipt Date: 20140110
  Transmission Date: 20141002
  Serious: Yes (Death, Hospitalization)
  Sender: FDA-Public Use
  Company Number: US-B.I. PHARMACEUTICALS,INC./RIDGEFIELD-2013-BI-20696BP

PATIENT
  Sex: Male
  Weight: 83.91 kg

DRUGS (11)
  1. PRADAXA [Suspect]
     Indication: ANTICOAGULANT THERAPY
     Dosage: 150 MG
     Route: 048
     Dates: start: 20120611, end: 20120629
  2. ALPRAZOLAM [Concomitant]
     Dates: start: 201206
  3. BUMETANIDE [Concomitant]
     Dates: start: 2012
  4. DOCQLACE [Concomitant]
     Dates: start: 2012
  5. LYRICA [Concomitant]
  6. MULTIVITAMIN [Concomitant]
     Dates: start: 2006, end: 2012
  7. NAPROXEN [Concomitant]
     Dates: start: 2012
  8. OXYCONTIN [Concomitant]
     Dates: start: 2005, end: 2012
  9. POTASSIUM CHLORIDE [Concomitant]
     Dates: start: 2011, end: 2012
  10. RISPERIDONE [Concomitant]
     Dates: start: 2012
  11. ZINC SULFATE [Concomitant]
     Dates: start: 2012

REACTIONS (3)
  - Diverticulum intestinal haemorrhagic [Fatal]
  - Haematuria [Recovered/Resolved]
  - Anaemia [Unknown]
